FAERS Safety Report 7383316-9 (Version None)
Quarter: 2011Q1

REPORT INFORMATION
  Report Type: 
  Country: None (occurrence: None)
  Receive Date: 20110325
  Receipt Date: 20110325
  Transmission Date: 20110831
  Serious: Yes (Hospitalization)
  Sender: FDA-Public Use
  Company Number: None

PATIENT
  Age: 61 Year
  Sex: Female

DRUGS (5)
  1. NASAL DECONGESTANT [Concomitant]
  2. SWISS KRISS [Concomitant]
  3. NAPROXEN [Suspect]
     Indication: OSTEOARTHRITIS
     Dosage: 500MG BID PO CHRONIC
     Route: 048
  4. NEXIUM [Concomitant]
  5. ALBUTEROL [Concomitant]

REACTIONS (8)
  - VARICES OESOPHAGEAL [None]
  - MUCOUS MEMBRANE DISORDER [None]
  - HAEMATEMESIS [None]
  - LIVER DISORDER [None]
  - GASTRIC DISORDER [None]
  - MELAENA [None]
  - HIATUS HERNIA [None]
  - NODULE [None]
